FAERS Safety Report 8965067 (Version 1)
Quarter: 2012Q4

REPORT INFORMATION
  Report Type: 
  Country: US (occurrence: US)
  Receive Date: 20121213
  Receipt Date: 20121213
  Transmission Date: 20130627
  Serious: No
  Sender: FDA-Public Use
  Company Number: US-BRISTOL-MYERS SQUIBB COMPANY-16436230

PATIENT
  Age: 64 Year
  Sex: Female
  Weight: 92.06 kg

DRUGS (4)
  1. PRAVASTATIN SODIUM [Suspect]
     Indication: BLOOD CHOLESTEROL
  2. SIMVASTATIN [Suspect]
     Indication: BLOOD CHOLESTEROL
  3. LIPITOR [Concomitant]
  4. CRESTOR [Concomitant]

REACTIONS (2)
  - Nausea [Unknown]
  - Muscle spasms [Unknown]
